FAERS Safety Report 17542611 (Version 1)
Quarter: 2020Q1

REPORT INFORMATION
  Report Type: Spontaneous
  Country: BR (occurrence: BR)
  Receive Date: 20200315
  Receipt Date: 20200315
  Transmission Date: 20200409
  Serious: Yes (Hospitalization, Other)
  Sender: FDA-Public Use
  Company Number: BR-TEVA-2020-BR-1198236

PATIENT
  Sex: Male

DRUGS (1)
  1. COPAXONE [Suspect]
     Active Substance: GLATIRAMER ACETATE
     Dates: start: 20200206

REACTIONS (7)
  - Diplegia [Recovering/Resolving]
  - Nausea [Recovering/Resolving]
  - Dizziness [Recovering/Resolving]
  - Tongue paralysis [Not Recovered/Not Resolved]
  - Headache [Recovering/Resolving]
  - Speech disorder [Recovering/Resolving]
  - Vision blurred [Recovering/Resolving]
